FAERS Safety Report 11860978 (Version 1)
Quarter: 2015Q4

REPORT INFORMATION
  Report Type: Spontaneous
  Country: US (occurrence: US)
  Receive Date: 20151222
  Receipt Date: 20151222
  Transmission Date: 20160305
  Serious: Yes (Other)
  Sender: FDA-Public Use
  Company Number: US-TORRENT-00001074

PATIENT
  Sex: Male

DRUGS (1)
  1. METFORMIN HYDROCHLORIDE TABLET, FILM COATED [Suspect]
     Active Substance: METFORMIN HYDROCHLORIDE
     Indication: PRODUCT USED FOR UNKNOWN INDICATION
     Dosage: METFORMIN 2000 MG/DAY

REACTIONS (2)
  - Glycosylated haemoglobin increased [None]
  - Pancreatitis [Unknown]
